FAERS Safety Report 5290308-2 (Version None)
Quarter: 2007Q2

REPORT INFORMATION
  Report Type: 
  Country: None (occurrence: None)
  Receive Date: 20070409
  Receipt Date: 20070330
  Transmission Date: 20071010
  Serious: Yes (Other)
  Sender: FDA-Public Use
  Company Number: HR-ELI_LILLY_AND_COMPANY-HR200704000029

PATIENT
  Age: 44 Year
  Sex: Female
  Weight: 60 kg

DRUGS (4)
  1. GEMZAR [Suspect]
     Indication: PANCREATIC CARCINOMA
     Dosage: UNK, UNK
     Route: 042
     Dates: start: 20061204
  2. REGLAN [Concomitant]
     Route: 042
  3. DEXAMETHASONE [Concomitant]
     Route: 042
  4. CISPLATIN [Concomitant]
     Indication: PANCREATIC CARCINOMA
     Dosage: ON DAY ONE OF CHEMOTHERAPY
     Route: 042
     Dates: start: 20061204

REACTIONS (3)
  - EYELID OEDEMA [None]
  - FACE OEDEMA [None]
  - OEDEMA PERIPHERAL [None]
